FAERS Safety Report 5795511-0 (Version None)
Quarter: 2008Q2

REPORT INFORMATION
  Report Type: 
  Country: None (occurrence: None)
  Receive Date: 20080630
  Receipt Date: 20080617
  Transmission Date: 20081010
  Serious: Yes (Hospitalization, Other)
  Sender: FDA-Public Use
  Company Number: PHHY2008JP08079

PATIENT
  Sex: Female

DRUGS (6)
  1. NEORAL [Suspect]
     Indication: INTERSTITIAL LUNG DISEASE
     Route: 048
  2. NEORAL [Suspect]
     Dosage: 100 MG/DAY
     Route: 048
  3. BREDININ [Concomitant]
     Indication: INTERSTITIAL LUNG DISEASE
     Route: 048
  4. PREDONINE [Concomitant]
     Indication: INTERSTITIAL LUNG DISEASE
     Route: 048
  5. PREDONINE-1 [Concomitant]
     Indication: INTERSTITIAL LUNG DISEASE
     Route: 042
  6. INSULIN [Concomitant]
     Indication: DIABETES MELLITUS
     Dosage: UNK
     Route: 058

REACTIONS (3)
  - HAEMORRHAGE SUBCUTANEOUS [None]
  - INTESTINAL HAEMORRHAGE [None]
  - THERAPEUTIC EMBOLISATION [None]
